FAERS Safety Report 20300210 (Version 1)
Quarter: 2022Q1

REPORT INFORMATION
  Report Type: Report from Study
  Country: US (occurrence: US)
  Receive Date: 20220105
  Receipt Date: 20220105
  Transmission Date: 20220423
  Serious: No
  Sender: FDA-Public Use
  Company Number: US-KYOWAKIRIN-2021BKK022000

PATIENT

DRUGS (1)
  1. CRYSVITA [Suspect]
     Active Substance: BUROSUMAB-TWZA
     Indication: Hereditary hypophosphataemic rickets
     Dosage: 20 MG, EVERY TWO WEEKS
     Route: 065
     Dates: start: 20210412

REACTIONS (2)
  - Gait inability [Unknown]
  - Product administration error [Unknown]

NARRATIVE: CASE EVENT DATE: 20210101
